FAERS Safety Report 18731356 (Version 1)
Quarter: 2021Q1

REPORT INFORMATION
  Report Type: Spontaneous
  Country: JP (occurrence: JP)
  Receive Date: 20210112
  Receipt Date: 20210112
  Transmission Date: 20210419
  Serious: Yes (Death)
  Sender: FDA-Public Use
  Company Number: NVSJ2021JP000706

PATIENT
  Age: 8 Year
  Sex: Female

DRUGS (2)
  1. PAZOPANIB [Suspect]
     Active Substance: PAZOPANIB
     Indication: RENAL NEOPLASM
     Dosage: UNKNOWN
     Route: 065
  2. SUNITINIB [Concomitant]
     Active Substance: SUNITINIB
     Indication: RENAL NEOPLASM
     Dosage: UNKNOWN
     Route: 065

REACTIONS (3)
  - Neoplasm progression [Fatal]
  - Renal neoplasm [Fatal]
  - Respiratory failure [Fatal]
